FAERS Safety Report 11700465 (Version 1)
Quarter: 2015Q4

REPORT INFORMATION
  Report Type: Spontaneous
  Country: US (occurrence: US)
  Receive Date: 20151105
  Receipt Date: 20151105
  Transmission Date: 20160304
  Serious: No
  Sender: FDA-Public Use
  Company Number: US-ELI_LILLY_AND_COMPANY-US201510004577

PATIENT
  Sex: Female

DRUGS (15)
  1. CYMBALTA [Suspect]
     Active Substance: DULOXETINE HYDROCHLORIDE
     Dosage: 60 MG, QD
     Route: 065
     Dates: start: 20151013
  2. DULOXETINE HYDROCHLORIDE. [Suspect]
     Active Substance: DULOXETINE HYDROCHLORIDE
     Dosage: 60 MG, QD
     Route: 065
     Dates: start: 20151012, end: 20151012
  3. METFORMIN [Concomitant]
     Active Substance: METFORMIN HYDROCHLORIDE
     Dosage: UNK, UNKNOWN
     Route: 065
  4. GLIPIZIDE. [Concomitant]
     Active Substance: GLIPIZIDE
     Dosage: UNK, UNKNOWN
     Route: 065
  5. DULOXETINE HYDROCHLORIDE. [Suspect]
     Active Substance: DULOXETINE HYDROCHLORIDE
     Indication: DEPRESSION
     Dosage: 60 MG, QD
     Route: 065
     Dates: start: 2014, end: 201509
  6. NOVOLOG [Concomitant]
     Active Substance: INSULIN ASPART
     Dosage: UNK, UNKNOWN
     Route: 065
  7. CYMBALTA [Suspect]
     Active Substance: DULOXETINE HYDROCHLORIDE
     Indication: DEPRESSION
     Dosage: 60 MG, QD
     Route: 065
     Dates: start: 2011
  8. DULOXETINE HYDROCHLORIDE. [Suspect]
     Active Substance: DULOXETINE HYDROCHLORIDE
     Dosage: 30 MG, UNK
     Route: 065
     Dates: start: 20151007, end: 20151011
  9. TRAZODONE [Concomitant]
     Active Substance: TRAZODONE HYDROCHLORIDE
     Dosage: UNK, UNKNOWN
     Route: 065
  10. RANITIDINE [Concomitant]
     Active Substance: RANITIDINE\RANITIDINE HYDROCHLORIDE
     Dosage: UNK, UNKNOWN
     Route: 065
  11. LOSARTAN. [Concomitant]
     Active Substance: LOSARTAN
     Dosage: UNK, UNKNOWN
     Route: 065
  12. INSULIN [Concomitant]
     Active Substance: INSULIN NOS
     Dosage: UNK, UNKNOWN
     Route: 065
  13. METOPROLOL [Concomitant]
     Active Substance: METOPROLOL
     Dosage: UNK, UNKNOWN
     Route: 065
  14. VICTOZA [Concomitant]
     Active Substance: LIRAGLUTIDE
     Dosage: UNK, UNKNOWN
     Route: 065
  15. OMEPRAZOLE. [Concomitant]
     Active Substance: OMEPRAZOLE
     Dosage: UNK, UNKNOWN
     Route: 065

REACTIONS (6)
  - Intentional product misuse [Unknown]
  - Abdominal discomfort [Not Recovered/Not Resolved]
  - Insomnia [Not Recovered/Not Resolved]
  - Gastroenteritis viral [Unknown]
  - Hyperhidrosis [Unknown]
  - Nausea [Recovered/Resolved]
